FAERS Safety Report 20482654 (Version 1)
Quarter: 2022Q1

REPORT INFORMATION
  Report Type: Spontaneous
  Country: IT (occurrence: IT)
  Receive Date: 20220217
  Receipt Date: 20220217
  Transmission Date: 20220423
  Serious: Yes (Hospitalization, Other)
  Sender: FDA-Public Use
  Company Number: IT-Accord-177018

PATIENT
  Age: 72 Year
  Sex: Female

DRUGS (2)
  1. FLUOROURACIL [Suspect]
     Active Substance: FLUOROURACIL
     Indication: Anal squamous cell carcinoma
  2. MITOMYCIN [Suspect]
     Active Substance: MITOMYCIN
     Indication: Anal squamous cell carcinoma

REACTIONS (8)
  - Off label use [Unknown]
  - Gastric ulcer haemorrhage [Recovered/Resolved]
  - Female genital tract fistula [Recovered/Resolved]
  - Gastrointestinal toxicity [Recovered/Resolved]
  - Gastrointestinal necrosis [Recovered/Resolved]
  - Necrosis ischaemic [Recovered/Resolved]
  - Intestinal ischaemia [Recovered/Resolved]
  - Soft tissue disorder [Recovered/Resolved]
